FAERS Safety Report 8607998-6 (Version None)
Quarter: 2012Q3

REPORT INFORMATION
  Report Type: 
  Country: None (occurrence: None)
  Receive Date: 20120809
  Receipt Date: 20120809
  Transmission Date: 20120928
  Serious: No
  Sender: FDA-Public Use
  Company Number: None

PATIENT

DRUGS (1)
  1. REVLIMID [Suspect]
     Indication: MYELODYSPLASTIC SYNDROME
     Dosage: REVLIMID DAILY FOR 21/28 DAYS ORAL X3 DOSES DATE UNKNOWN
     Route: 048
     Dates: start: 20120401

REACTIONS (6)
  - RASH [None]
  - DIARRHOEA [None]
  - HEADACHE [None]
  - DRUG HYPERSENSITIVITY [None]
  - PRURITUS [None]
  - PERIORBITAL OEDEMA [None]
